FAERS Safety Report 14507481 (Version 1)
Quarter: 2018Q1

REPORT INFORMATION
  Report Type: Spontaneous
  Country: US (occurrence: US)
  Receive Date: 20180208
  Receipt Date: 20180208
  Transmission Date: 20180509
  Serious: No
  Sender: FDA-Public Use
  Company Number: US-PURDUE-USA-2017-0141495

PATIENT
  Sex: Female

DRUGS (3)
  1. BUPRENORPHINE (SIMILAR TO NDA 21-306) [Suspect]
     Active Substance: BUPRENORPHINE
     Indication: BEDRIDDEN
  2. BUPRENORPHINE (SIMILAR TO NDA 21-306) [Suspect]
     Active Substance: BUPRENORPHINE
     Indication: FALL
     Dosage: 10 MCG/HR, WEEKLY
     Route: 062
     Dates: start: 20171103
  3. BUPRENORPHINE (SIMILAR TO NDA 21-306) [Suspect]
     Active Substance: BUPRENORPHINE
     Indication: GAIT INABILITY

REACTIONS (3)
  - Drug ineffective [Unknown]
  - Dry mouth [Unknown]
  - Visual acuity reduced [Unknown]
